FAERS Safety Report 23663886 (Version 3)
Quarter: 2024Q2

REPORT INFORMATION
  Report Type: Spontaneous
  Country: CZ (occurrence: None)
  Receive Date: 20240322
  Receipt Date: 20240426
  Transmission Date: 20240716
  Serious: Yes (Other)
  Sender: FDA-Public Use
  Company Number: 2024A069176

PATIENT
  Sex: Female

DRUGS (6)
  1. TAGRISSO [Suspect]
     Active Substance: OSIMERTINIB
     Dosage: ONCE EVERY THREE DAYS
     Route: 048
     Dates: start: 20220331
  2. TAGRISSO [Suspect]
     Active Substance: OSIMERTINIB
     Dosage: 80 EVERY OTHER DAY
     Route: 048
  3. NEURONTIN [Concomitant]
     Active Substance: GABAPENTIN
     Indication: Neuropathy peripheral
     Dosage: AT NIGHT
  4. BISOPROLOL [Concomitant]
     Active Substance: BISOPROLOL\BISOPROLOL FUMARATE
     Indication: Product used for unknown indication
  5. DIGOXIN [Concomitant]
     Active Substance: DIGOXIN
     Indication: Product used for unknown indication
  6. XARELTO [Concomitant]
     Active Substance: RIVAROXABAN
     Indication: Product used for unknown indication

REACTIONS (15)
  - Arrhythmia [Unknown]
  - Platelet count decreased [Recovering/Resolving]
  - Illness [Unknown]
  - Pain in extremity [Unknown]
  - Peripheral coldness [Unknown]
  - Burning sensation [Unknown]
  - Arthralgia [Unknown]
  - Diarrhoea [Recovered/Resolved]
  - Head discomfort [Unknown]
  - Neuropathy peripheral [Unknown]
  - Paraesthesia [Unknown]
  - Feeling drunk [Unknown]
  - Off label use [Unknown]
  - COVID-19 [Unknown]
  - Lung disorder [Unknown]
